FAERS Safety Report 9798150 (Version 1)
Quarter: 2014Q1

REPORT INFORMATION
  Report Type: Spontaneous
  Country: US (occurrence: None)
  Receive Date: 20140102
  Receipt Date: 20140102
  Transmission Date: 20141002
  Serious: Yes (Other)
  Sender: FDA-Public Use
  Company Number: None

PATIENT
  Age: 35 Year
  Sex: Female

DRUGS (1)
  1. MAKENA 250MG/ML THER-RX CORP [Suspect]
     Route: 030
     Dates: start: 20131203, end: 20131210

REACTIONS (2)
  - Hypoaesthesia [None]
  - Paraesthesia [None]
